FAERS Safety Report 9027341 (Version 1)
Quarter: 2013Q1

REPORT INFORMATION
  Report Type: Spontaneous
  Country: US (occurrence: US)
  Receive Date: 20130123
  Receipt Date: 20130123
  Transmission Date: 20140127
  Serious: No
  Sender: FDA-Public Use
  Company Number: US-ASTRAZENECA-2013SE02246

PATIENT
  Sex: Female

DRUGS (2)
  1. NEXIUM [Suspect]
     Indication: GASTROOESOPHAGEAL REFLUX DISEASE
     Route: 048
  2. VITAMINS [Concomitant]

REACTIONS (5)
  - Osteoporosis [Unknown]
  - Hot flush [Unknown]
  - Hypertension [Unknown]
  - White blood cell count decreased [Unknown]
  - Intentional drug misuse [Unknown]
